FAERS Safety Report 8454833-5 (Version None)
Quarter: 2012Q2

REPORT INFORMATION
  Report Type: 
  Country: None (occurrence: None)
  Receive Date: 20120621
  Receipt Date: 20120611
  Transmission Date: 20120825
  Serious: Yes (Other)
  Sender: FDA-Public Use
  Company Number: TR-JNJFOC-20120605238

PATIENT
  Age: 29 Year
  Sex: Male

DRUGS (7)
  1. PROPRANOLOL [Suspect]
     Indication: SCHIZOPHRENIA
     Route: 065
  2. PALIPERIDONE [Suspect]
     Route: 048
  3. QUETIAPINE [Concomitant]
     Indication: SEDATION
     Route: 065
  4. PALIPERIDONE [Suspect]
     Indication: SCHIZOPHRENIA
     Route: 048
  5. PALIPERIDONE [Suspect]
     Route: 048
  6. AMISULPRID [Suspect]
     Indication: SCHIZOPHRENIA
     Route: 065
  7. DIAZEPAM [Concomitant]
     Indication: SCHIZOPHRENIA
     Route: 065

REACTIONS (6)
  - HYPERSOMNIA [None]
  - AKATHISIA [None]
  - DEPRESSION [None]
  - MUSCLE RIGIDITY [None]
  - WEIGHT INCREASED [None]
  - UNEVALUABLE EVENT [None]
